FAERS Safety Report 26177443 (Version 1)
Quarter: 2025Q4

REPORT INFORMATION
  Report Type: Spontaneous
  Country: GB (occurrence: GB)
  Receive Date: 20251219
  Receipt Date: 20251219
  Transmission Date: 20260118
  Serious: Yes (Disabling, Other)
  Sender: HETERO
  Company Number: None

PATIENT
  Age: 28 Year
  Sex: Female

DRUGS (1)
  1. ATOMOXETINE [Suspect]
     Active Substance: ATOMOXETINE
     Indication: Attention deficit hyperactivity disorder
     Dosage: 25 MILLIGRAM, QD
     Route: 065
     Dates: start: 20251001, end: 20251031

REACTIONS (6)
  - Paranoia [Recovered/Resolved]
  - Dermatillomania [Recovered/Resolved]
  - Suicidal ideation [Recovered/Resolved]
  - Depression [Recovering/Resolving]
  - Hypertension [Recovered/Resolved]
  - Migraine [Recovered/Resolved]

NARRATIVE: CASE EVENT DATE: 20251001
